FAERS Safety Report 5690580-0 (Version None)
Quarter: 2008Q1

REPORT INFORMATION
  Report Type: 
  Country: None (occurrence: None)
  Receive Date: 20080331
  Receipt Date: 20080331
  Transmission Date: 20080703
  Serious: Yes (Other)
  Sender: FDA-Public Use
  Company Number: None

PATIENT
  Age: 11 Year
  Sex: Male
  Weight: 87 kg

DRUGS (2)
  1. SINGULAIR [Suspect]
     Indication: ASTHMA
     Dosage: 1 PILL NIGHT PO
     Route: 048
     Dates: start: 20070115, end: 20080327
  2. SINGULAIR [Suspect]
     Indication: MULTIPLE ALLERGIES
     Dosage: 1 PILL NIGHT PO
     Route: 048
     Dates: start: 20070115, end: 20080327

REACTIONS (7)
  - ABNORMAL BEHAVIOUR [None]
  - ANGER [None]
  - ANXIETY [None]
  - CRYING [None]
  - INITIAL INSOMNIA [None]
  - MOOD SWINGS [None]
  - THINKING ABNORMAL [None]
